FAERS Safety Report 16274134 (Version 1)
Quarter: 2019Q2

REPORT INFORMATION
  Report Type: Spontaneous
  Country: RO (occurrence: RO)
  Receive Date: 20190504
  Receipt Date: 20190504
  Transmission Date: 20190711
  Serious: Yes (Hospitalization)
  Sender: FDA-Public Use
  Company Number: RO-ROCHE-2312196

PATIENT
  Age: 66 Year

DRUGS (1)
  1. VEMURAFENIB. [Suspect]
     Active Substance: VEMURAFENIB
     Indication: MALIGNANT MELANOMA
     Route: 048
     Dates: start: 20181219, end: 20181229

REACTIONS (2)
  - Periorbital cellulitis [Not Recovered/Not Resolved]
  - Cellulitis orbital [Not Recovered/Not Resolved]

NARRATIVE: CASE EVENT DATE: 20181229
